FAERS Safety Report 7003444-7 (Version None)
Quarter: 2010Q3

REPORT INFORMATION
  Report Type: 
  Country: None (occurrence: None)
  Receive Date: 20100920
  Receipt Date: 20100910
  Transmission Date: 20110219
  Serious: Yes (Death, Hospitalization, Other)
  Sender: FDA-Public Use
  Company Number: US-AMGEN-QUU429862

PATIENT
  Sex: Female

DRUGS (19)
  1. NPLATE [Suspect]
     Indication: MYELODYSPLASTIC SYNDROME
     Dates: start: 20090714, end: 20090724
  2. NEUPOGEN [Concomitant]
  3. REVLIMID [Concomitant]
     Dates: start: 20081101
  4. VANCOMYCIN [Concomitant]
  5. CIPROFLOXACIN [Concomitant]
  6. FLAGYL [Concomitant]
  7. INSULIN [Concomitant]
  8. CEFTAZIDIME [Concomitant]
  9. VORICONAZOLE [Concomitant]
  10. AZTREONAM [Concomitant]
  11. AMIODARONE HCL [Concomitant]
  12. METOPROLOL [Concomitant]
  13. ATIVAN [Concomitant]
  14. FENTANYL CITRATE [Concomitant]
  15. PLATELETS [Concomitant]
  16. BLOOD CELLS, PACKED HUMAN [Concomitant]
  17. PROPOFOL [Concomitant]
  18. ZOLEDRONIC ACID [Concomitant]
  19. AMINOCAPROIC ACID [Concomitant]

REACTIONS (4)
  - DEPRESSED LEVEL OF CONSCIOUSNESS [None]
  - DRUG INEFFECTIVE [None]
  - FATIGUE [None]
  - RESPIRATORY FAILURE [None]
